APPROVED DRUG PRODUCT: FLUORESCITE
Active Ingredient: FLUORESCEIN SODIUM
Strength: EQ 500MG BASE/5ML (EQ 100MG BASE/ML)
Dosage Form/Route: INJECTABLE;INTRAVENOUS
Application: N021980 | Product #001 | TE Code: AP
Applicant: ALCON LABORATORIES INC
Approved: Mar 28, 2006 | RLD: Yes | RS: Yes | Type: RX